FAERS Safety Report 4487011-5 (Version None)
Quarter: 2004Q4

REPORT INFORMATION
  Report Type: 
  Country: None (occurrence: None)
  Receive Date: 20041022
  Receipt Date: 20041012
  Transmission Date: 20050328
  Serious: Yes (Hospitalization)
  Sender: FDA-Public Use
  Company Number: 2004233697JP

PATIENT
  Age: 69 Year
  Sex: Female

DRUGS (2)
  1. FARMORUBICIN(EPIRUBICIN HYROCHLORIDE) POWDER, STERILE [Suspect]
     Indication: METASTASES TO LUNG
     Dosage: 115 MG, QD, IV
     Route: 042
     Dates: start: 20040901
  2. CYCLOPHOSPHAMIDE [Suspect]
     Indication: METASTASES TO LUNG
     Dosage: 910 MG, QD, IV
     Route: 042
     Dates: start: 20040901

REACTIONS (1)
  - BLOOD AMYLASE INCREASED [None]
